FAERS Safety Report 5639232-3 (Version None)
Quarter: 2008Q1

REPORT INFORMATION
  Report Type: 
  Country: None (occurrence: None)
  Receive Date: 20080226
  Receipt Date: 20080220
  Transmission Date: 20080703
  Serious: Yes (Other)
  Sender: FDA-Public Use
  Company Number: US-BOEHRINGER INGELHEIM GMBH, GERMANY-2007-BP-26198BP

PATIENT
  Sex: Male
  Weight: 100 kg

DRUGS (2)
  1. ZANTAC 150 [Suspect]
     Indication: DYSPEPSIA
     Route: 048
     Dates: start: 20071129, end: 20071201
  2. ZANTAC 150 [Suspect]

REACTIONS (7)
  - ACNE [None]
  - DIZZINESS [None]
  - ERYTHEMA MULTIFORME [None]
  - MALAISE [None]
  - NAUSEA [None]
  - SCAR [None]
  - YELLOW SKIN [None]
